FAERS Safety Report 23788005 (Version 7)
Quarter: 2024Q4

REPORT INFORMATION
  Report Type: Spontaneous
  Country: US (occurrence: US)
  Receive Date: 20240426
  Receipt Date: 20241220
  Transmission Date: 20250115
  Serious: Yes (Hospitalization, Other)
  Sender: BRISTOL-MYERS SQUIBB COMPANY
  Company Number: US-BRISTOL-MYERS SQUIBB COMPANY-2024-061005

PATIENT
  Age: 81 Year
  Sex: Male
  Weight: 89.81 kg

DRUGS (3)
  1. REVLIMID [Suspect]
     Active Substance: LENALIDOMIDE
     Indication: Product used for unknown indication
     Dosage: 3 WEEKS SON,1 WEEK OFF (3 WEEKS ON, 1 WEEK OFF)?1 CAPSULE DAILY FOR 21 DAYS, THEN 7 DAYS OFF DAILY F
     Route: 048
  2. REVLIMID [Suspect]
     Active Substance: LENALIDOMIDE
     Route: 048
     Dates: start: 202412
  3. RIVASTIGMINE [Suspect]
     Active Substance: RIVASTIGMINE
     Indication: Product used for unknown indication

REACTIONS (16)
  - Mental status changes [Recovering/Resolving]
  - Tachycardia [Recovering/Resolving]
  - Blood lactic acid increased [Recovering/Resolving]
  - Urinary retention [Recovering/Resolving]
  - Product availability issue [Unknown]
  - Therapy interrupted [Unknown]
  - Tooth loss [Not Recovered/Not Resolved]
  - COVID-19 [Unknown]
  - Haemoglobin decreased [Not Recovered/Not Resolved]
  - Pallor [Not Recovered/Not Resolved]
  - Blood glucose increased [Recovering/Resolving]
  - Nausea [Recovered/Resolved]
  - Vomiting [Recovered/Resolved]
  - Diarrhoea [Recovered/Resolved]
  - Limb injury [Recovering/Resolving]
  - Product dose omission issue [Unknown]

NARRATIVE: CASE EVENT DATE: 20240101
